FAERS Safety Report 12498133 (Version 1)
Quarter: 2016Q2

REPORT INFORMATION
  Report Type: Spontaneous
  Country: US (occurrence: US)
  Receive Date: 20160626
  Receipt Date: 20160626
  Transmission Date: 20160815
  Serious: No
  Sender: FDA-Public Use
  Company Number: US-TEVA-669635USA

PATIENT
  Age: 52 Year
  Sex: Female

DRUGS (3)
  1. LEXAPRO [Concomitant]
     Active Substance: ESCITALOPRAM OXALATE
  2. COPAXONE [Suspect]
     Active Substance: GLATIRAMER ACETATE
     Indication: MULTIPLE SCLEROSIS
     Route: 058
     Dates: start: 20151231
  3. MULTIVITAMIN [Concomitant]
     Active Substance: VITAMINS

REACTIONS (4)
  - Injection site haemorrhage [Unknown]
  - Injection site reaction [Unknown]
  - Injection site mass [Unknown]
  - Injection site pruritus [Unknown]

NARRATIVE: CASE EVENT DATE: 201605
